FAERS Safety Report 9704958 (Version 2)
Quarter: 2013Q4

REPORT INFORMATION
  Report Type: Spontaneous
  Country: AU (occurrence: AU)
  Receive Date: 20131122
  Receipt Date: 20131122
  Transmission Date: 20140711
  Serious: Yes (Death, Hospitalization)
  Sender: FDA-Public Use
  Company Number: AU-ASTELLAS-2012EU009787

PATIENT
  Age: 67 Year
  Sex: Male
  Weight: 126 kg

DRUGS (12)
  1. BLINDED ENZALUTAMIDE [Suspect]
     Indication: PROSTATE CANCER
     Dosage: 160 MG, UID/QD
     Route: 048
     Dates: start: 20120413, end: 20120926
  2. ZOLADEX                            /00732101/ [Concomitant]
     Indication: PROSTATE CANCER
     Dosage: 10.8 MG, UNKNOWN/D
     Route: 058
     Dates: start: 201105
  3. JANUMET [Concomitant]
     Indication: TYPE 2 DIABETES MELLITUS
     Dosage: 50 MG, BID
     Route: 048
     Dates: start: 2009
  4. AVAPRO [Concomitant]
     Indication: HYPERTENSION
     Dosage: 300 MG, UID/QD
     Route: 048
     Dates: start: 2009
  5. ZOCOR [Concomitant]
     Indication: HYPERCHOLESTEROLAEMIA
     Dosage: 40 MG, UID/QD
     Route: 048
     Dates: start: 2009
  6. VOLTAREN                           /00372301/ [Concomitant]
     Indication: ARTHRITIS
     Dosage: 50 MG, UID/QD
     Route: 048
     Dates: start: 2009
  7. FLOMAXTRA [Concomitant]
     Indication: DYSURIA
     Dosage: 400 MG, UID/QD
     Route: 048
     Dates: start: 2011
  8. ASPIRIN [Concomitant]
     Indication: PROPHYLAXIS
     Dosage: 5 MG, UID/QD
     Route: 048
     Dates: start: 201101
  9. ENDONE [Concomitant]
     Indication: BACK PAIN
     Dosage: 20 MG, QID
     Route: 065
     Dates: start: 20120927
  10. OXYCONTIN [Concomitant]
     Indication: BACK PAIN
     Dosage: 20 MG, BID
     Route: 065
     Dates: start: 20120927
  11. PREDNISONE [Concomitant]
     Indication: PROSTATE CANCER
     Dosage: 5 MG, BID
     Route: 048
     Dates: start: 20120927
  12. DOCETAXEL [Concomitant]
     Dosage: UNK
     Route: 065

REACTIONS (2)
  - Atrial fibrillation [Not Recovered/Not Resolved]
  - Intestinal obstruction [Fatal]
